FAERS Safety Report 5910941-1 (Version None)
Quarter: 2008Q4

REPORT INFORMATION
  Report Type: 
  Country: None (occurrence: None)
  Receive Date: 20081007
  Receipt Date: 20080716
  Transmission Date: 20090506
  Serious: No
  Sender: FDA-Public Use
  Company Number: US-ASTRAZENECA-2008UW14208

PATIENT
  Sex: Female

DRUGS (6)
  1. ARIMIDEX [Suspect]
     Indication: BREAST CANCER FEMALE
     Route: 048
     Dates: start: 20040101
  2. ACTONEL [Concomitant]
  3. OMEPRAZOLE [Concomitant]
  4. FUROSEMIDE [Concomitant]
  5. KLOR-CON [Concomitant]
  6. LISINOPRIL [Concomitant]

REACTIONS (2)
  - PAIN IN EXTREMITY [None]
  - TENDONITIS [None]
